FAERS Safety Report 6829824-8 (Version None)
Quarter: 2010Q3

REPORT INFORMATION
  Report Type: 
  Country: None (occurrence: None)
  Receive Date: 20100706
  Receipt Date: 20100628
  Transmission Date: 20110219
  Serious: Yes (Other)
  Sender: FDA-Public Use
  Company Number: DSA_42746_2010

PATIENT
  Sex: Male

DRUGS (6)
  1. XENAZINE [Suspect]
     Indication: DYSKINESIA
     Dosage: (1/4 TO 1/2 TABLET ONCE DAILY ORAL)
     Route: 048
     Dates: start: 20100228, end: 20100601
  2. RESERPINE [Concomitant]
  3. DETROL [Concomitant]
  4. PRILOSEC [Concomitant]
  5. CELEXA [Concomitant]
  6. ZOCOR [Concomitant]

REACTIONS (8)
  - BLOOD PRESSURE INADEQUATELY CONTROLLED [None]
  - BLOOD PRESSURE INCREASED [None]
  - DECREASED ACTIVITY [None]
  - DIZZINESS [None]
  - EYE HAEMORRHAGE [None]
  - FALL [None]
  - JOINT INSTABILITY [None]
  - MALAISE [None]
